FAERS Safety Report 11427450 (Version 1)
Quarter: 2015Q3

REPORT INFORMATION
  Report Type: Spontaneous
  Country: US (occurrence: None)
  Receive Date: 20150826
  Receipt Date: 20150826
  Transmission Date: 20151125
  Serious: Yes (Other)
  Sender: FDA-Public Use
  Company Number: ADR-2015-01493

PATIENT
  Age: 19 Year
  Sex: Male

DRUGS (11)
  1. NASALINE [Suspect]
     Active Substance: SODIUM CHLORIDE
  2. ATROVENT [Suspect]
     Active Substance: IPRATROPIUM BROMIDE
  3. LIORESAL [Suspect]
     Active Substance: BACLOFEN
     Indication: MUSCLE SPASTICITY
  4. LAMICTAL [Suspect]
     Active Substance: LAMOTRIGINE
  5. ZOFRAN [Suspect]
     Active Substance: ONDANSETRON HYDROCHLORIDE
  6. ROXICET [Suspect]
     Active Substance: ACETAMINOPHEN\OXYCODONE HYDROCHLORIDE
  7. ZYRTEC [Suspect]
     Active Substance: CETIRIZINE HYDROCHLORIDE
  8. PEPCID [Suspect]
     Active Substance: FAMOTIDINE
  9. PHENOBARBITAL. [Suspect]
     Active Substance: PHENOBARBITAL
  10. BENTYL [Suspect]
     Active Substance: DICYCLOMINE HYDROCHLORIDE
  11. NEURIN [Suspect]
     Active Substance: CYANOCOBALAMIN

REACTIONS (2)
  - Malnutrition [None]
  - Implant site erosion [None]

NARRATIVE: CASE EVENT DATE: 20080202
